FAERS Safety Report 6330610-6 (Version None)
Quarter: 2009Q3

REPORT INFORMATION
  Report Type: 
  Country: None (occurrence: None)
  Receive Date: 20090827
  Receipt Date: 20090824
  Transmission Date: 20100115
  Serious: Yes (Hospitalization)
  Sender: FDA-Public Use
  Company Number: US-BRISTOL-MYERS SQUIBB COMPANY-14753255

PATIENT
  Age: 64 Year
  Sex: Female

DRUGS (3)
  1. CYTOXAN [Suspect]
     Indication: BREAST CANCER
  2. TAXOTERE [Suspect]
     Indication: BREAST CANCER
     Dosage: SOLUTION FOR INFUSION
     Route: 042
  3. HERCEPTIN [Suspect]
     Dosage: ADMINISTERED 1 DOSE.

REACTIONS (1)
  - CAPILLARY LEAK SYNDROME [None]
